FAERS Safety Report 9731782 (Version 1)
Quarter: 2013Q4

REPORT INFORMATION
  Report Type: Spontaneous
  Country: US (occurrence: None)
  Receive Date: 20131204
  Receipt Date: 20131204
  Transmission Date: 20140711
  Serious: No
  Sender: FDA-Public Use
  Company Number: None

PATIENT
  Age: 43 Year
  Sex: Female

DRUGS (1)
  1. SAFYRAL [Suspect]
     Indication: MENSTRUATION IRREGULAR
     Route: 048
     Dates: end: 20131113

REACTIONS (17)
  - Eye haemorrhage [None]
  - Breast tenderness [None]
  - Rash macular [None]
  - Skin discolouration [None]
  - Menstrual disorder [None]
  - Headache [None]
  - Swelling [None]
  - Nausea [None]
  - Vomiting [None]
  - Asthenia [None]
  - Fatigue [None]
  - Depression [None]
  - Mood swings [None]
  - Dyspepsia [None]
  - Libido increased [None]
  - Fear [None]
  - Feeling abnormal [None]
